FAERS Safety Report 9085318 (Version 1)
Quarter: 2013Q1

REPORT INFORMATION
  Report Type: Report from Study
  Country: US (occurrence: US)
  Receive Date: 20130131
  Receipt Date: 20130131
  Transmission Date: 20140127
  Serious: No
  Sender: FDA-Public Use
  Company Number: US-ABBOTT-12P-163-1001123-00

PATIENT
  Age: 56 Year
  Sex: Male
  Weight: 106.69 kg

DRUGS (9)
  1. HUMIRA [Suspect]
     Indication: PSORIASIS
     Dosage: PSORIASIS STARTER PACK
     Route: 058
     Dates: start: 201206, end: 201206
  2. HUMIRA [Suspect]
     Dates: start: 201206, end: 201206
  3. HUMIRA [Suspect]
     Dates: start: 201207
  4. ADVAIR [Concomitant]
     Indication: PRODUCT USED FOR UNKNOWN INDICATION
  5. BENAZEPRIL [Concomitant]
     Indication: PRODUCT USED FOR UNKNOWN INDICATION
  6. COUMADIN [Concomitant]
     Indication: PRODUCT USED FOR UNKNOWN INDICATION
  7. DIGOXIN [Concomitant]
     Indication: PRODUCT USED FOR UNKNOWN INDICATION
  8. VERAPAMIL [Concomitant]
     Indication: PRODUCT USED FOR UNKNOWN INDICATION
  9. TYLENOL [Concomitant]
     Indication: PRODUCT USED FOR UNKNOWN INDICATION

REACTIONS (3)
  - Cough [Recovering/Resolving]
  - Influenza [Recovering/Resolving]
  - Upper respiratory tract infection [Recovering/Resolving]
